FAERS Safety Report 11968681 (Version 3)
Quarter: 2016Q1

REPORT INFORMATION
  Report Type: Spontaneous
  Country: US (occurrence: US)
  Receive Date: 20160128
  Receipt Date: 20160328
  Transmission Date: 20160526
  Serious: No
  Sender: FDA-Public Use
  Company Number: US-009507513-1601USA005799

PATIENT
  Sex: Female

DRUGS (1)
  1. ZOCOR [Suspect]
     Active Substance: SIMVASTATIN
     Indication: BLOOD CHOLESTEROL ABNORMAL
     Dosage: UNK (STARTED 6.5 TO 7 YEARS AGO)
     Route: 048
     Dates: start: 2009, end: 2009

REACTIONS (9)
  - Throat tightness [Recovered/Resolved]
  - Nervousness [Recovered/Resolved]
  - Chest discomfort [Recovered/Resolved]
  - Pharyngeal oedema [Recovered/Resolved]
  - Fear [Recovered/Resolved]
  - Herpes zoster [Recovered/Resolved]
  - Mydriasis [Recovered/Resolved]
  - Blister [Recovered/Resolved]
  - Feeling abnormal [Recovered/Resolved]

NARRATIVE: CASE EVENT DATE: 2009
